FAERS Safety Report 4431264-6 (Version None)
Quarter: 2004Q3

REPORT INFORMATION
  Report Type: 
  Country: None (occurrence: None)
  Receive Date: 20040818
  Receipt Date: 20040804
  Transmission Date: 20050211
  Serious: Yes (Death, Hospitalization)
  Sender: FDA-Public Use
  Company Number: B0341516A

PATIENT
  Age: 58 Year
  Sex: Male

DRUGS (5)
  1. EPIVIR [Suspect]
     Indication: HIV INFECTION
     Dates: start: 19961201, end: 20000801
  2. STAVUDINE [Concomitant]
  3. NEVIRAPINE [Concomitant]
  4. DIDANOSINE [Concomitant]
  5. INDINAVIR SULFATE [Concomitant]

REACTIONS (7)
  - COMA [None]
  - ENCEPHALITIS [None]
  - GENOTYPE DRUG RESISTANCE TEST [None]
  - HEPATIC FAILURE [None]
  - HEPATIC NECROSIS [None]
  - HEPATITIS B [None]
  - PATHOGEN RESISTANCE [None]
